FAERS Safety Report 17130989 (Version 1)
Quarter: 2019Q4

REPORT INFORMATION
  Report Type: Spontaneous
  Country: US (occurrence: US)
  Receive Date: 20191209
  Receipt Date: 20191209
  Transmission Date: 20200122
  Serious: No
  Sender: FDA-Public Use
  Company Number: US-BAUSCH-BL-2019-062662

PATIENT
  Age: 75 Year
  Sex: Female
  Weight: 67.65 kg

DRUGS (1)
  1. LORAZEPAM. [Suspect]
     Active Substance: LORAZEPAM
     Indication: ANXIETY
     Dosage: USED FOR ABOUT ONE WEEK
     Route: 065
     Dates: start: 201906, end: 2019

REACTIONS (3)
  - Insurance issue [Unknown]
  - Drug ineffective [Unknown]
  - Product substitution issue [Unknown]

NARRATIVE: CASE EVENT DATE: 2019
